FAERS Safety Report 8565584-0 (Version None)
Quarter: 2012Q3

REPORT INFORMATION
  Report Type: 
  Country: None (occurrence: None)
  Receive Date: 20120803
  Receipt Date: 20120731
  Transmission Date: 20120928
  Serious: Yes (Death)
  Sender: FDA-Public Use
  Company Number: CO-PFIZER INC-2012188220

PATIENT
  Age: 61 Year
  Sex: Male

DRUGS (5)
  1. LIPITOR [Suspect]
     Indication: HYPERLIPIDAEMIA
     Dosage: 10 MG, UNK
     Route: 065
     Dates: start: 20080302
  2. ENALAPRIL [Concomitant]
     Route: 065
  3. SALICYLIC ACID [Concomitant]
     Route: 065
  4. OLMESARTAN MEDOXOMIL AND HYDROCHLOROTHIZIDE [Suspect]
     Indication: HYPERTENSION
     Dosage: UNK
     Route: 065
     Dates: start: 20080302
  5. METOPROLOL [Concomitant]
     Dosage: 50 MG, UNK
     Route: 065

REACTIONS (1)
  - DEATH [None]
